FAERS Safety Report 10234489 (Version 2)
Quarter: 2014Q3

REPORT INFORMATION
  Report Type: Spontaneous
  Country: IT (occurrence: IT)
  Receive Date: 20140613
  Receipt Date: 20140703
  Transmission Date: 20150326
  Serious: Yes (Other)
  Sender: FDA-Public Use
  Company Number: IT-ROCHE-1417936

PATIENT
  Sex: Female

DRUGS (3)
  1. PACLITAXEL. [Suspect]
     Active Substance: PACLITAXEL
     Indication: BREAST CANCER METASTATIC
     Route: 042
     Dates: start: 20140225, end: 20140610
  2. PERJETA [Concomitant]
     Active Substance: PERTUZUMAB
     Indication: BREAST CANCER METASTATIC
     Route: 042
     Dates: start: 20140225, end: 20140610
  3. HERCEPTIN [Concomitant]
     Active Substance: TRASTUZUMAB
     Indication: BREAST CANCER METASTATIC
     Route: 042
     Dates: start: 20140225, end: 20140610

REACTIONS (1)
  - Macular oedema [Unknown]
